FAERS Safety Report 10728522 (Version 1)
Quarter: 2015Q1

REPORT INFORMATION
  Report Type: Spontaneous
  Country: US (occurrence: US)
  Receive Date: 20150122
  Receipt Date: 20150122
  Transmission Date: 20150721
  Serious: No
  Sender: FDA-Public Use
  Company Number: US-BRISTOL-MYERS SQUIBB COMPANY-BMS-2015-001669

PATIENT
  Sex: Male
  Weight: 90.7 kg

DRUGS (10)
  1. ONDANSETRON [Concomitant]
     Active Substance: ONDANSETRON
  2. LORAZEPAM. [Concomitant]
     Active Substance: LORAZEPAM
  3. FLONASE                            /00908302/ [Concomitant]
  4. DOXYCYCLINE. [Concomitant]
     Active Substance: DOXYCYCLINE
  5. GABAPENTIN. [Concomitant]
     Active Substance: GABAPENTIN
  6. ERBITUX [Suspect]
     Active Substance: CETUXIMAB
     Indication: PRODUCT USED FOR UNKNOWN INDICATION
     Dosage: UNK
     Route: 065
     Dates: start: 201412
  7. LISINOPRIL HCTZ [Concomitant]
     Active Substance: HYDROCHLOROTHIAZIDE\LISINOPRIL
  8. DEXAMETHASONE. [Concomitant]
     Active Substance: DEXAMETHASONE
  9. TRAMADOL [Concomitant]
     Active Substance: TRAMADOL
  10. AMITIPTYLINE [Concomitant]

REACTIONS (1)
  - Rash pruritic [Recovered/Resolved]
